FAERS Safety Report 8280801-2 (Version None)
Quarter: 2012Q2

REPORT INFORMATION
  Report Type: 
  Country: None (occurrence: None)
  Receive Date: 20120412
  Receipt Date: 20120406
  Transmission Date: 20120825
  Serious: Yes (Death, Other)
  Sender: FDA-Public Use
  Company Number: JP-ABBOTT-12P-087-0921794-00

PATIENT
  Age: 62 Year
  Sex: Female

DRUGS (3)
  1. HUMIRA [Suspect]
     Indication: CROHN'S DISEASE
     Route: 058
     Dates: start: 20111208, end: 20111208
  2. HUMIRA [Suspect]
     Dates: end: 20120329
  3. HUMIRA [Suspect]

REACTIONS (6)
  - SHORT-BOWEL SYNDROME [None]
  - ASTHENIA [None]
  - SEPSIS [None]
  - RESPIRATORY ARREST [None]
  - DEVICE RELATED INFECTION [None]
  - SURGICAL PROCEDURE REPEATED [None]
